FAERS Safety Report 15782701 (Version 1)
Quarter: 2019Q1

REPORT INFORMATION
  Report Type: Spontaneous
  Country: US (occurrence: US)
  Receive Date: 20190102
  Receipt Date: 20190102
  Transmission Date: 20190417
  Serious: No
  Sender: FDA-Public Use
  Company Number: US-BAYER-2018-244341

PATIENT
  Sex: Male

DRUGS (2)
  1. BETASERON [Suspect]
     Active Substance: INTERFERON BETA-1B
     Indication: MULTIPLE SCLEROSIS
     Dosage: 0.25 MG, QOD
     Route: 058
  2. CEPHALEXIN [CEFALEXIN] [Concomitant]
     Active Substance: CEPHALEXIN
     Dosage: UNK

REACTIONS (3)
  - Rash papular [None]
  - Erythema [None]
  - Pruritus [None]
